FAERS Safety Report 17244989 (Version 4)
Quarter: 2020Q1

REPORT INFORMATION
  Report Type: Spontaneous
  Country: CA (occurrence: CA)
  Receive Date: 20200108
  Receipt Date: 20200204
  Transmission Date: 20200409
  Serious: Yes (Other)
  Sender: FDA-Public Use
  Company Number: CA-ORION CORPORATION ORION PHARMA-TREX2020-0112

PATIENT
  Age: 72 Year
  Sex: Female
  Weight: 29.48 kg

DRUGS (3)
  1. ENBREL [Concomitant]
     Active Substance: ETANERCEPT
     Route: 065
  2. METHOTREXATE (TRADE NAME UNKNOWN) [Suspect]
     Active Substance: METHOTREXATE
     Indication: RHEUMATOID ARTHRITIS
     Route: 048
  3. BRENZYS [Concomitant]
     Active Substance: ETANERCEPT
     Route: 058

REACTIONS (2)
  - Rheumatoid arthritis [Unknown]
  - Nasopharyngitis [Not Recovered/Not Resolved]
